FAERS Safety Report 7206826-3 (Version None)
Quarter: 2010Q4

REPORT INFORMATION
  Report Type: 
  Country: None (occurrence: None)
  Receive Date: 20101221
  Receipt Date: 20101206
  Transmission Date: 20110411
  Serious: Yes (Death)
  Sender: FDA-Public Use
  Company Number: 012187

PATIENT
  Sex: Male

DRUGS (4)
  1. BUSULFEX [Suspect]
     Indication: STEM CELL TRANSPLANT
     Dosage: 4 MG/KG
  2. CLOFARABINE [Concomitant]
  3. CAMPATH [Concomitant]
  4. MELPHALAN HYDROCHLORIDE [Concomitant]

REACTIONS (2)
  - INFECTION [None]
  - TRANSPLANT FAILURE [None]
